FAERS Safety Report 6790591-8 (Version None)
Quarter: 2010Q2

REPORT INFORMATION
  Report Type: 
  Country: None (occurrence: None)
  Receive Date: 20100624
  Receipt Date: 20100414
  Transmission Date: 20101027
  Serious: Yes (Death, Other)
  Sender: FDA-Public Use
  Company Number: JP-SANOFI-AVENTIS-2010SA021377

PATIENT
  Sex: Male

DRUGS (2)
  1. TAXOTERE [Suspect]
     Dosage: CYCLE: THREE SUCCESSIVE WEEKS AT A DOSE OF 25MG/M2, AFTER A WEEK OF CESSATION
     Route: 041
  2. DEXAMETHASONE ACETATE [Concomitant]
     Route: 048

REACTIONS (2)
  - INTERSTITIAL LUNG DISEASE [None]
  - RESPIRATORY DISORDER [None]
